FAERS Safety Report 6876781-4 (Version None)
Quarter: 2010Q3

REPORT INFORMATION
  Report Type: 
  Country: None (occurrence: None)
  Receive Date: 20100727
  Receipt Date: 20100713
  Transmission Date: 20110219
  Serious: Yes (Other)
  Sender: FDA-Public Use
  Company Number: PHHY2010DE46261

PATIENT
  Age: 55 Year
  Sex: Male

DRUGS (4)
  1. BENAZEPRIL HYDROCHLORIDE [Interacting]
     Indication: BLOOD PRESSURE
  2. EVEROLIMUS [Interacting]
  3. MYCOPHENOLATE MOFETIL [Suspect]
     Dosage: 1.4 G
  4. METHYLPREDNISOLONE [Concomitant]
     Dosage: 5 MG

REACTIONS (2)
  - ANGIOEDEMA [None]
  - LIP SWELLING [None]
